FAERS Safety Report 8435450-X (Version None)
Quarter: 2012Q2

REPORT INFORMATION
  Report Type: 
  Country: None (occurrence: None)
  Receive Date: 20120614
  Receipt Date: 20120605
  Transmission Date: 20120825
  Serious: Yes (Hospitalization, Other)
  Sender: FDA-Public Use
  Company Number: US-BAYER-2012-042471

PATIENT
  Age: 28 Year
  Sex: Female
  Weight: 91.61 kg

DRUGS (3)
  1. YASMIN [Suspect]
     Indication: CONTRACEPTION
     Dosage: UNK
     Dates: start: 20070219, end: 20070924
  2. IBUPROFEN [Concomitant]
     Indication: PAIN
     Dosage: 800 MG, UNK
     Dates: start: 20070902
  3. ROSULA [Concomitant]

REACTIONS (10)
  - MENTAL STATUS CHANGES [None]
  - INJURY [None]
  - ABDOMINAL PAIN [None]
  - PAIN [None]
  - NAUSEA [None]
  - APHASIA [None]
  - PULMONARY EMBOLISM [None]
  - INTRACRANIAL VENOUS SINUS THROMBOSIS [None]
  - CONFUSIONAL STATE [None]
  - DISORIENTATION [None]
